FAERS Safety Report 4404118-9 (Version None)
Quarter: 2004Q3

REPORT INFORMATION
  Report Type: 
  Country: None (occurrence: None)
  Receive Date: 20040719
  Receipt Date: 20040714
  Transmission Date: 20050211
  Serious: Yes (Other)
  Sender: FDA-Public Use
  Company Number: 2004-04-1698

PATIENT
  Age: 53 Year
  Sex: Male
  Weight: 65 kg

DRUGS (7)
  1. INTRON A [Suspect]
     Indication: HEPATITIS C
     Dosage: 1.5 MU TIW INTRAMUSCULAR
     Route: 030
     Dates: start: 20040422
  2. REBETOL [Suspect]
     Indication: HEPATITIS C
     Dosage: 400 MG QD ORAL
     Route: 048
     Dates: start: 20040422
  3. PROGRAF [Concomitant]
  4. ZOVIRAX [Concomitant]
  5. FUNGIZONE [Concomitant]
  6. OMEPRAZOLE [Concomitant]
  7. LAMIVUDINE [Concomitant]

REACTIONS (3)
  - C-REACTIVE PROTEIN INCREASED [None]
  - PERICARDIAL EFFUSION [None]
  - POST PROCEDURAL COMPLICATION [None]
